FAERS Safety Report 9837990 (Version 3)
Quarter: 2014Q2

REPORT INFORMATION
  Report Type: Spontaneous
  Country: US (occurrence: None)
  Receive Date: 20131205
  Receipt Date: 20140416
  Transmission Date: 20141212
  Serious: No
  Sender: FDA-Public Use
  Company Number: 163-POMAL-13106404

PATIENT
  Age: 63 Year
  Sex: Male
  Weight: 77 kg

DRUGS (19)
  1. POMALYST [Suspect]
     Indication: PLASMA CELL MYELOMA
     Route: 048
     Dates: start: 20131024
  2. RITUXAN (RITUXAN) [Concomitant]
  3. VELCADE (BORTEZOMIB) [Concomitant]
  4. ASPIRIN (ACETYLSALICYLIC ACID) [Concomitant]
  5. ZETIA (EZETIMIBE) [Concomitant]
  6. CRESTOR (ROSUVASTATIN) [Concomitant]
  7. FISH OIL (FISH OIL) [Concomitant]
  8. FOLTX (TRIOBE) [Concomitant]
  9. RAMIPRIL (RAMIPRIL) [Concomitant]
  10. NEXIUM (ESOMEPRAZOLE) [Concomitant]
  11. ALTACE (RAMIPRIL) [Concomitant]
  12. LOMOTIL (LOMOTIL) [Concomitant]
  13. LASIX (FUROSEMIDE) [Concomitant]
  14. OMEGA 3 (FISH OIL) [Concomitant]
  15. AMBIEN PAK (ZOLPIDEM TARTRATE) [Concomitant]
  16. LEVOFLOXACIN (LEVOFLOXACIN) [Concomitant]
  17. VALTREX (VALACICLOVIR HYDROCHLORIDE) [Concomitant]
  18. NIACIN (NICOTINIC ACID) [Concomitant]
  19. DEXAMETHASONE (DEXAMETHASONE) [Concomitant]

REACTIONS (4)
  - Throat irritation [None]
  - Diarrhoea [None]
  - Abdominal pain upper [None]
  - Neuropathy peripheral [None]
